FAERS Safety Report 5673655-1 (Version None)
Quarter: 2008Q1

REPORT INFORMATION
  Report Type: 
  Country: None (occurrence: None)
  Receive Date: 20080319
  Receipt Date: 20080314
  Transmission Date: 20080703
  Serious: Yes (Hospitalization)
  Sender: FDA-Public Use
  Company Number: KR-PFIZER INC-2007012623

PATIENT
  Sex: Female
  Weight: 54 kg

DRUGS (8)
  1. SU-011,248 [Suspect]
     Indication: METASTATIC RENAL CELL CARCINOMA
     Route: 048
     Dates: start: 20060918, end: 20070213
  2. FENTANYL CITRATE [Concomitant]
     Route: 062
  3. MEGESTROL ACETATE [Concomitant]
     Route: 048
  4. LOPERAMIDE HCL [Concomitant]
     Route: 048
     Dates: start: 20070210, end: 20070211
  5. ENZYMES [Concomitant]
     Route: 048
  6. ITOPRIDE HYDROCHLORIDE [Concomitant]
     Route: 048
  7. CIMETIDINE [Concomitant]
     Route: 048
  8. AMLODIPINE [Concomitant]
     Route: 048

REACTIONS (2)
  - CHOLECYSTITIS [None]
  - THROMBOCYTOPENIA [None]
